FAERS Safety Report 6336656-6 (Version None)
Quarter: 2009Q3

REPORT INFORMATION
  Report Type: 
  Country: None (occurrence: None)
  Receive Date: 20090901
  Receipt Date: 20090827
  Transmission Date: 20100115
  Serious: Yes (Life-Threatening, Hospitalization)
  Sender: FDA-Public Use
  Company Number: KE-GILEAD-2009-0023962

PATIENT
  Age: 25 Year
  Sex: Male
  Weight: 60.5 kg

DRUGS (6)
  1. TRUVADA [Suspect]
     Indication: HIV INFECTION
     Route: 048
     Dates: start: 20090623, end: 20090701
  2. STOCRIN [Suspect]
     Indication: HIV INFECTION
     Route: 048
     Dates: start: 20090623, end: 20090701
  3. RIFAMPICIN [Concomitant]
  4. ISONIAZID [Concomitant]
  5. SEPTRIN [Concomitant]
  6. FANSIDAR [Concomitant]

REACTIONS (1)
  - EPISTAXIS [None]
